FAERS Safety Report 9985058 (Version 1)
Quarter: 2014Q1

REPORT INFORMATION
  Report Type: Report from Study
  Country: US (occurrence: US)
  Receive Date: 20140307
  Receipt Date: 20140307
  Transmission Date: 20141002
  Serious: No
  Sender: FDA-Public Use
  Company Number: US-ABBVIE-13P-163-1184630-00

PATIENT
  Age: 59 Year
  Sex: Female

DRUGS (6)
  1. HUMIRA [Suspect]
     Indication: RHEUMATOID ARTHRITIS
     Dates: start: 20131115
  2. PREDNISONE [Concomitant]
     Indication: RHEUMATOID ARTHRITIS
  3. FOLIC ACID [Concomitant]
     Indication: PRODUCT USED FOR UNKNOWN INDICATION
  4. METHOTREXATE [Concomitant]
     Indication: RHEUMATOID ARTHRITIS
  5. METFORMIN [Concomitant]
     Indication: DIABETES MELLITUS
  6. CYMBALTA [Concomitant]
     Indication: DEPRESSION

REACTIONS (4)
  - Drug administered at inappropriate site [Not Recovered/Not Resolved]
  - Injection site swelling [Recovered/Resolved]
  - Injection site discolouration [Not Recovered/Not Resolved]
  - Wrong technique in drug usage process [Not Recovered/Not Resolved]
